FAERS Safety Report 8172819-5 (Version None)
Quarter: 2012Q1

REPORT INFORMATION
  Report Type: 
  Country: None (occurrence: None)
  Receive Date: 20120229
  Receipt Date: 20120224
  Transmission Date: 20120608
  Serious: Yes (Hospitalization, Other)
  Sender: FDA-Public Use
  Company Number: US-AMGEN INC.-QUU444604

PATIENT
  Age: 55 Year
  Sex: Male
  Weight: 82 kg

DRUGS (10)
  1. EPOGEN [Suspect]
     Dates: start: 20080101, end: 20100915
  2. EPOGEN [Suspect]
     Indication: RENAL FAILURE CHRONIC
     Dosage: UNK UNK, QWK
     Route: 058
     Dates: start: 20081216, end: 20100908
  3. CALCIUM CARBONATE [Concomitant]
     Dosage: UNK
     Dates: start: 20081203
  4. EPOGEN [Suspect]
     Dates: start: 20080101, end: 20100915
  5. DIALYVITE 3000 [Concomitant]
     Dosage: UNK
     Dates: start: 20081117
  6. AMLODIPINE [Concomitant]
     Dosage: UNK
     Dates: start: 20100319
  7. CALCIUM ACETATE [Concomitant]
     Dosage: UNK
     Dates: start: 20091102
  8. EPOGEN [Suspect]
     Dates: start: 20080101, end: 20100915
  9. LISINOPRIL [Concomitant]
     Dosage: UNK
     Dates: start: 20091228
  10. OMEPRAZOLE [Concomitant]
     Dosage: UNK
     Dates: start: 20100719

REACTIONS (4)
  - THERAPEUTIC RESPONSE DECREASED [None]
  - ANTI-ERYTHROPOIETIN ANTIBODY POSITIVE [None]
  - APLASIA PURE RED CELL [None]
  - ANAEMIA [None]
